FAERS Safety Report 8094035-8 (Version None)
Quarter: 2012Q1

REPORT INFORMATION
  Report Type: 
  Country: None (occurrence: None)
  Receive Date: 20120131
  Receipt Date: 20120127
  Transmission Date: 20120608
  Serious: Yes (Death, Hospitalization)
  Sender: FDA-Public Use
  Company Number: PHEH2012US002384

PATIENT
  Age: 67 Year
  Sex: Male

DRUGS (1)
  1. VALTURNA [Suspect]

REACTIONS (3)
  - HYPOXIA [None]
  - MALAISE [None]
  - RESPIRATORY FAILURE [None]
